FAERS Safety Report 10234346 (Version 1)
Quarter: 2014Q2

REPORT INFORMATION
  Report Type: Spontaneous
  Country: US (occurrence: US)
  Receive Date: 20140612
  Receipt Date: 20140612
  Transmission Date: 20141212
  Serious: Yes (Hospitalization)
  Sender: FDA-Public Use
  Company Number: US-B.I. PHARMACEUTICALS,INC./RIDGEFIELD-2014-BI-25734BP

PATIENT
  Sex: Female
  Weight: 68 kg

DRUGS (5)
  1. SPIRIVA [Suspect]
     Indication: PRODUCT USED FOR UNKNOWN INDICATION
     Dosage: 18 MCG
     Route: 055
     Dates: start: 2009
  2. OMEPRAZOLE [Concomitant]
     Dosage: 40 MG
     Route: 048
     Dates: start: 2005
  3. FUROSEMIDE [Concomitant]
     Indication: FLUID RETENTION
     Dosage: 20 MG
     Route: 048
     Dates: start: 2005
  4. ENALAPRIL [Concomitant]
     Indication: HYPERTENSION
     Dosage: 5 MG
     Route: 048
     Dates: start: 2005
  5. ISOSORBIDE MONO [Concomitant]
     Dosage: 20 MG
     Route: 048
     Dates: start: 2005

REACTIONS (4)
  - Vomiting [Recovered/Resolved]
  - Osteoarthritis [Not Recovered/Not Resolved]
  - Abdominal hernia [Not Recovered/Not Resolved]
  - Loss of consciousness [Recovered/Resolved]
